FAERS Safety Report 6264384-4 (Version None)
Quarter: 2009Q3

REPORT INFORMATION
  Report Type: 
  Country: None (occurrence: None)
  Receive Date: 20090710
  Receipt Date: 20090703
  Transmission Date: 20100115
  Serious: Yes (Other)
  Sender: FDA-Public Use
  Company Number: B0580431A

PATIENT
  Age: 27 Year
  Sex: Male

DRUGS (4)
  1. VALTREX [Suspect]
     Indication: DRUG USE FOR UNKNOWN INDICATION
     Route: 048
     Dates: start: 20090618
  2. SRENDAM [Concomitant]
     Route: 061
  3. CYANOCOBALAMIN [Concomitant]
     Route: 065
  4. PREDNISOLONE [Concomitant]
     Route: 065

REACTIONS (3)
  - DEAFNESS [None]
  - HEADACHE [None]
  - HYPOAESTHESIA [None]
